FAERS Safety Report 10502704 (Version 2)
Quarter: 2014Q4

REPORT INFORMATION
  Report Type: Spontaneous
  Country: JP (occurrence: None)
  Receive Date: 20141003
  Receipt Date: 20141107
  Transmission Date: 20150528
  Serious: Yes (Life-Threatening)
  Sender: FDA-Public Use
  Company Number: JP-017218

PATIENT
  Age: 78 Year
  Sex: Male

DRUGS (12)
  1. CIBENOL [Concomitant]
     Active Substance: CIFENLINE
  2. BLOPRESS [Concomitant]
     Active Substance: CANDESARTAN CILEXETIL
  3. SENNARIDE [Concomitant]
     Active Substance: SENNOSIDES A AND B
  4. MAGMITT [Concomitant]
     Active Substance: MAGNESIUM OXIDE
  5. DEGARELIX (GONAX) (240 MG, 80 MG) [Suspect]
     Active Substance: DEGARELIX
     Indication: PROSTATE CANCER
     Route: 058
     Dates: start: 20130910, end: 20130910
  6. OXYCONTIN [Concomitant]
     Active Substance: OXYCODONE HYDROCHLORIDE
  7. CASODEX [Concomitant]
     Active Substance: BICALUTAMIDE
  8. BEPRICOR [Concomitant]
     Active Substance: BEPRIDIL
  9. TERPERAN [Concomitant]
     Active Substance: METOCLOPRAMIDE HYDROCHLORIDE
  10. HYPEN [Concomitant]
     Active Substance: ETODOLAC
  11. WARFARIN [Concomitant]
     Active Substance: WARFARIN
  12. TAKEPRON [Concomitant]
     Active Substance: LANSOPRAZOLE

REACTIONS (4)
  - Fall [None]
  - Coma [None]
  - Brain contusion [None]
  - Subarachnoid haemorrhage [None]

NARRATIVE: CASE EVENT DATE: 20140101
